FAERS Safety Report 16122657 (Version 2)
Quarter: 2019Q4

REPORT INFORMATION
  Report Type: Report from Study
  Country: CA (occurrence: CA)
  Receive Date: 20190327
  Receipt Date: 20191017
  Transmission Date: 20200122
  Serious: No
  Sender: FDA-Public Use
  Company Number: CA-ROCHE-2291082

PATIENT
  Age: 49 Year
  Sex: Female

DRUGS (9)
  1. GABAPENTIN. [Concomitant]
     Active Substance: GABAPENTIN
     Indication: PAIN
     Route: 065
  2. CETIRIZIN [Concomitant]
     Active Substance: CETIRIZINE HYDROCHLORIDE
     Indication: SEASONAL ALLERGY
     Route: 065
  3. TYLENOL [Concomitant]
     Active Substance: ACETAMINOPHEN
     Indication: HEADACHE
     Route: 065
  4. BACLOFEN. [Concomitant]
     Active Substance: BACLOFEN
     Route: 065
  5. IBUPROFEN. [Concomitant]
     Active Substance: IBUPROFEN
  6. OCREVUS [Suspect]
     Active Substance: OCRELIZUMAB
     Indication: RELAPSING-REMITTING MULTIPLE SCLEROSIS
     Dosage: THEN 600 MG EVERY 6 MONTH
     Route: 042
     Dates: start: 20190307
  7. OCREVUS [Suspect]
     Active Substance: OCRELIZUMAB
     Dosage: 600 MG EVERY 6 MONTH
     Route: 042
     Dates: start: 20191004
  8. SYNTHROID [Concomitant]
     Active Substance: LEVOTHYROXINE SODIUM
     Indication: HYPOTHYROIDISM
     Route: 065
  9. ADVIL [IBUPROFEN] [Concomitant]
     Active Substance: IBUPROFEN

REACTIONS (3)
  - Nasopharyngitis [Recovered/Resolved]
  - Infusion related reaction [Not Recovered/Not Resolved]
  - Infusion related reaction [Recovered/Resolved]

NARRATIVE: CASE EVENT DATE: 20190307
